FAERS Safety Report 12056948 (Version 1)
Quarter: 2016Q1

REPORT INFORMATION
  Report Type: Spontaneous
  Country: FR (occurrence: FR)
  Receive Date: 20160209
  Receipt Date: 20160209
  Transmission Date: 20160526
  Serious: Yes (Life-Threatening, Hospitalization)
  Sender: FDA-Public Use
  Company Number: FR-DSJP-DSE-2016-104734

PATIENT

DRUGS (6)
  1. ASPIRINE [Suspect]
     Active Substance: ASPIRIN
     Indication: PRODUCT USED FOR UNKNOWN INDICATION
     Dosage: 40 DF, SINGLE
     Dates: start: 20151214, end: 20151214
  2. TRIMEBUTINE [Suspect]
     Active Substance: TRIMEBUTINE
     Indication: PRODUCT USED FOR UNKNOWN INDICATION
     Dosage: 20 DF, SINGLE
     Dates: start: 20151214, end: 20151214
  3. TRIMEBUTINE [Suspect]
     Active Substance: TRIMEBUTINE
     Indication: SUICIDE ATTEMPT
     Dosage: 200 MG, UNK
     Route: 048
     Dates: end: 20151213
  4. SEVIKAR 20 MG/ 5 MG [Suspect]
     Active Substance: AMLODIPINE BESYLATE\OLMESARTAN MEDOXOMIL
     Indication: HYPERTENSION
     Dosage: 105 DF, SINGLE
     Route: 048
     Dates: start: 20151214, end: 20151214
  5. SEVIKAR 20 MG/ 5 MG [Suspect]
     Active Substance: AMLODIPINE BESYLATE\OLMESARTAN MEDOXOMIL
     Indication: SUICIDE ATTEMPT
     Dosage: 1 UNK, UNK
     Route: 048
     Dates: end: 20151213
  6. ASPIRINE [Suspect]
     Active Substance: ASPIRIN
     Indication: SUICIDE ATTEMPT
     Dosage: 500 MG, UNK
     Route: 048
     Dates: end: 20151213

REACTIONS (3)
  - Coma [Recovered/Resolved]
  - Shock [Recovered/Resolved]
  - Cardiogenic shock [Recovered/Resolved]

NARRATIVE: CASE EVENT DATE: 20151214
